FAERS Safety Report 20447667 (Version 3)
Quarter: 2022Q1

REPORT INFORMATION
  Report Type: Report from Study
  Country: CO (occurrence: CO)
  Receive Date: 20220209
  Receipt Date: 20220303
  Transmission Date: 20220423
  Serious: Yes (Hospitalization, Other)
  Sender: FDA-Public Use
  Company Number: CO-BAYER-2022A017912

PATIENT
  Age: 68 Year
  Sex: Female

DRUGS (6)
  1. VENTAVIS [Suspect]
     Active Substance: ILOPROST
     Indication: Pulmonary arterial hypertension
     Dosage: 5 UG, 6 TIMES PER DAY
     Route: 055
     Dates: start: 20210315, end: 20220213
  2. LEVOTHYROXINE [Concomitant]
     Active Substance: LEVOTHYROXINE
     Indication: Hyperthyroidism
     Dosage: UNK
  3. FUROSEMIDE [Concomitant]
     Active Substance: FUROSEMIDE
     Indication: Fluid retention
     Dosage: UNK
  4. METOPROLOL [Concomitant]
     Active Substance: METOPROLOL
     Indication: Cardiac failure
     Dosage: UNK
  5. ENALAPRIL [Concomitant]
     Active Substance: ENALAPRIL
     Indication: Hypertension
     Dosage: UNK
  6. SILDENAFIL [Concomitant]
     Active Substance: SILDENAFIL
     Indication: Pulmonary hypertension
     Dosage: UNK

REACTIONS (7)
  - Gastrointestinal disorder [Recovering/Resolving]
  - Haematochezia [Unknown]
  - Gastritis [Recovering/Resolving]
  - Haemorrhoids [Not Recovered/Not Resolved]
  - Dizziness [Not Recovered/Not Resolved]
  - Chest pain [Not Recovered/Not Resolved]
  - Fatigue [Not Recovered/Not Resolved]

NARRATIVE: CASE EVENT DATE: 20220101
